FAERS Safety Report 15849928 (Version 4)
Quarter: 2019Q1

REPORT INFORMATION
  Report Type: Spontaneous
  Country: US (occurrence: US)
  Receive Date: 20190121
  Receipt Date: 20190306
  Transmission Date: 20190417
  Serious: Yes (Hospitalization, Other)
  Sender: FDA-Public Use
  Company Number: US-ACTELION-A-NJ2019-184916

PATIENT
  Age: 73 Year
  Sex: Male
  Weight: 95.24 kg

DRUGS (6)
  1. OPSUMIT [Suspect]
     Active Substance: MACITENTAN
     Indication: PULMONARY ARTERIAL HYPERTENSION
     Dosage: 10 MG, QD
     Route: 048
     Dates: start: 20190106, end: 20190111
  2. SILDENAFIL. [Concomitant]
     Active Substance: SILDENAFIL
     Dosage: 25 MG, TID
     Route: 048
     Dates: start: 20190107
  3. OPSUMIT [Suspect]
     Active Substance: MACITENTAN
     Dosage: 10 MG, QD
     Route: 048
     Dates: start: 20190113
  4. OXYGEN. [Concomitant]
     Active Substance: OXYGEN
  5. SILDENAFIL. [Concomitant]
     Active Substance: SILDENAFIL
     Dosage: 20 MG, QD
     Dates: start: 201810, end: 20190106
  6. WARFARIN [Concomitant]
     Active Substance: WARFARIN

REACTIONS (9)
  - Vision blurred [Not Recovered/Not Resolved]
  - Dizziness [Unknown]
  - Oxygen saturation decreased [Unknown]
  - Malaise [Unknown]
  - Disturbance in attention [Unknown]
  - Dyspnoea exertional [Not Recovered/Not Resolved]
  - Asthenia [Unknown]
  - Fluid retention [Unknown]
  - Fatigue [Unknown]

NARRATIVE: CASE EVENT DATE: 201901
